FAERS Safety Report 5196725-3 (Version None)
Quarter: 2007Q1

REPORT INFORMATION
  Report Type: 
  Country: None (occurrence: None)
  Receive Date: 20070103
  Receipt Date: 20061228
  Transmission Date: 20070707
  Serious: Yes (Hospitalization)
  Sender: FDA-Public Use
  Company Number: GB-BAYER-200611434BNE

PATIENT
  Sex: Male

DRUGS (1)
  1. CIPROFLOXACIN [Suspect]
     Indication: SALMONELLOSIS
     Dosage: TOTAL DAILY DOSE: 1000 MG
     Route: 048

REACTIONS (4)
  - ALOPECIA [None]
  - BONE MARROW FAILURE [None]
  - PANCYTOPENIA [None]
  - STOMATITIS [None]
